FAERS Safety Report 8817746 (Version 4)
Quarter: 2014Q3

REPORT INFORMATION
  Report Type: Report from Study
  Country: JP (occurrence: JP)
  Receive Date: 20121001
  Receipt Date: 20140805
  Transmission Date: 20150326
  Serious: Yes (Hospitalization)
  Sender: FDA-Public Use
  Company Number: PHHY2012JP084926

PATIENT
  Age: 65 Year
  Sex: Female

DRUGS (26)
  1. GLAKAY [Concomitant]
     Dosage: 45 MG, UNK
     Route: 048
     Dates: start: 20120906
  2. GASTER [Concomitant]
     Active Substance: FAMOTIDINE
     Dosage: 20 MG, PRN
     Route: 048
     Dates: end: 20130110
  3. BETAFERON [Concomitant]
     Active Substance: INTERFERON BETA-1B
     Dosage: 8 MIU, QOD
     Route: 058
     Dates: start: 20020711, end: 20110825
  4. GILENYA [Suspect]
     Active Substance: FINGOLIMOD HYDROCHLORIDE
     Dosage: 0.5 MG, QD
     Route: 048
     Dates: start: 20120608
  5. HIRUDOID [Concomitant]
     Active Substance: GLYCOSAMINOGLYCANS
     Route: 061
     Dates: start: 20120229, end: 20130328
  6. MAGLAX [Concomitant]
     Active Substance: MAGNESIUM OXIDE
     Dosage: 1980 MG, UNK
     Route: 048
  7. MOBIC [Concomitant]
     Active Substance: MELOXICAM
     Dosage: 10 MG, UNK
     Route: 048
     Dates: start: 20121101
  8. AVONEX [Concomitant]
     Active Substance: INTERFERON BETA-1A
     Dosage: 30 UG, QW
     Route: 030
     Dates: start: 20110825, end: 20120116
  9. ALFAROL [Concomitant]
     Active Substance: ALFACALCIDOL
     Dosage: 1 UG, UNK
     Route: 048
     Dates: start: 20120906
  10. NABOAL [Concomitant]
     Dosage: 1 G, UNK
     Route: 061
     Dates: start: 20121115
  11. SOLU-MEDROL [Concomitant]
     Active Substance: METHYLPREDNISOLONE SODIUM SUCCINATE
     Dosage: 1000 MG, UNK
     Route: 051
     Dates: start: 20120203, end: 20120205
  12. SOLU-MEDROL [Concomitant]
     Active Substance: METHYLPREDNISOLONE SODIUM SUCCINATE
     Dosage: 1000 MG, UNK
     Route: 051
     Dates: start: 20120215, end: 20120217
  13. GILENYA [Suspect]
     Active Substance: FINGOLIMOD HYDROCHLORIDE
     Indication: MULTIPLE SCLEROSIS
     Dosage: 0.5 MG, QD
     Route: 048
     Dates: start: 20120221, end: 20120406
  14. BONOTEO [Suspect]
     Active Substance: MINODRONIC ACID
     Indication: OSTEOPOROSIS
     Dosage: 50 MG, UNK
     Route: 048
     Dates: end: 20120516
  15. LIORESAL [Concomitant]
     Active Substance: BACLOFEN
     Dosage: 30 MG, UNK
     Route: 048
  16. SOLU-MEDROL [Concomitant]
     Active Substance: METHYLPREDNISOLONE SODIUM SUCCINATE
     Dosage: 1000 MG, UNK
     Route: 051
     Dates: start: 20110601, end: 20110603
  17. INTEBAN [Concomitant]
     Active Substance: INDOMETHACIN
     Dosage: 1 G, UNK
     Route: 061
     Dates: start: 20120229, end: 20121114
  18. SOLU-MEDROL [Concomitant]
     Active Substance: METHYLPREDNISOLONE SODIUM SUCCINATE
     Dosage: 1000 MG, UNK
     Route: 051
     Dates: start: 20110525, end: 20110527
  19. RIVOTRIL [Suspect]
     Active Substance: CLONAZEPAM
     Indication: PAIN IN EXTREMITY
     Dosage: 0.5 MG, UNK
     Route: 048
     Dates: end: 20120513
  20. LOXONIN [Concomitant]
     Active Substance: LOXOPROFEN SODIUM
     Dosage: 100 MG, UNK
     Route: 061
     Dates: start: 20120229
  21. MOHRUS [Concomitant]
     Active Substance: KETOPROFEN
     Route: 061
     Dates: start: 20120229, end: 20130328
  22. SOLU-MEDROL [Concomitant]
     Active Substance: METHYLPREDNISOLONE SODIUM SUCCINATE
     Dosage: 1000 MG, UNK
     Route: 051
     Dates: start: 20110608, end: 20110610
  23. SOLU-MEDROL [Concomitant]
     Active Substance: METHYLPREDNISOLONE SODIUM SUCCINATE
     Dosage: 1000 MG, UNK
     Route: 051
     Dates: start: 20120208, end: 20120210
  24. ELCITONIN [Concomitant]
     Active Substance: ELCATONIN
     Route: 051
     Dates: start: 20120210, end: 20120302
  25. LOXONIN [Concomitant]
     Active Substance: LOXOPROFEN SODIUM
     Dosage: 60 MG, UNK
     Route: 048
  26. EBRANTIL [Concomitant]
     Active Substance: URAPIDIL
     Dosage: 60 MG, UNK
     Route: 048

REACTIONS (2)
  - Hepatic function abnormal [Recovered/Resolved]
  - Herpes zoster [Recovered/Resolved]

NARRATIVE: CASE EVENT DATE: 20120228
